FAERS Safety Report 15687921 (Version 1)
Quarter: 2018Q4

REPORT INFORMATION
  Report Type: Spontaneous
  Country: US (occurrence: US)
  Receive Date: 20181205
  Receipt Date: 20181205
  Transmission Date: 20190205
  Serious: No
  Sender: FDA-Public Use
  Company Number: US-ROCHE-2210499

PATIENT
  Age: 2 Year
  Sex: Male

DRUGS (2)
  1. HEMLIBRA [Suspect]
     Active Substance: EMICIZUMAB-KXWH
     Indication: FACTOR VIII DEFICIENCY
     Dosage: 3MG/KG/DOSE WEEKLY X 4 THEN 1.5MG/KG/DOSE WEEKLY
     Route: 065
  2. RFVIIA [Concomitant]
     Active Substance: COAGULATION FACTOR VIIA HUMAN

REACTIONS (4)
  - Pain [Recovered/Resolved]
  - Fall [Unknown]
  - Paraesthesia [Recovered/Resolved]
  - Clavicle fracture [Unknown]
